FAERS Safety Report 5971849-9 (Version None)
Quarter: 2008Q4

REPORT INFORMATION
  Report Type: 
  Country: None (occurrence: None)
  Receive Date: 20081125
  Receipt Date: 20081112
  Transmission Date: 20090506
  Serious: Yes (Other)
  Sender: FDA-Public Use
  Company Number: 238408J08USA

PATIENT
  Age: 37 Year
  Sex: Female

DRUGS (1)
  1. REBIF [Suspect]
     Indication: MULTIPLE SCLEROSIS
     Dosage: 44 MCG, 3 IN 1 WEEKS, SUBCUTANEOUS
     Route: 058
     Dates: start: 20080217

REACTIONS (6)
  - CHILLS [None]
  - ENDOMETRIOSIS [None]
  - HEADACHE [None]
  - INSOMNIA [None]
  - TREMOR [None]
  - UTERINE DISORDER [None]
